FAERS Safety Report 24117296 (Version 1)
Quarter: 2024Q3

REPORT INFORMATION
  Report Type: Spontaneous
  Country: IT (occurrence: IT)
  Receive Date: 20240722
  Receipt Date: 20240722
  Transmission Date: 20241016
  Serious: Yes (Hospitalization)
  Sender: OXFORD PHARMACEUTICALS
  Company Number: IT-Oxford Pharmaceuticals, LLC-2159413

PATIENT
  Age: 72 Year
  Sex: Male

DRUGS (2)
  1. BACLOFEN [Suspect]
     Active Substance: BACLOFEN
     Indication: Hiccups
  2. CHLORPROMAZINE [Suspect]
     Active Substance: CHLORPROMAZINE
     Route: 042

REACTIONS (1)
  - Drug ineffective for unapproved indication [Unknown]
